FAERS Safety Report 25702454 (Version 1)
Quarter: 2025Q3

REPORT INFORMATION
  Report Type: Spontaneous
  Country: TW (occurrence: US)
  Receive Date: 20250819
  Receipt Date: 20250819
  Transmission Date: 20251021
  Serious: Yes (Other)
  Sender: MERCK SHARP & DOHME LLC
  Company Number: TW-009507513-2317361

PATIENT
  Age: 72 Year
  Sex: Male

DRUGS (1)
  1. PEMBROLIZUMAB [Suspect]
     Active Substance: PEMBROLIZUMAB
     Dates: start: 202109, end: 202308

REACTIONS (3)
  - Malignant neoplasm progression [Unknown]
  - Dyspnoea [Unknown]
  - Pemphigoid [Unknown]

NARRATIVE: CASE EVENT DATE: 20220801
